FAERS Safety Report 16398531 (Version 1)
Quarter: 2019Q2

REPORT INFORMATION
  Report Type: Spontaneous
  Country: GB (occurrence: GB)
  Receive Date: 20190606
  Receipt Date: 20190606
  Transmission Date: 20190711
  Serious: Yes (Life-Threatening, Other)
  Sender: FDA-Public Use
  Company Number: GB-CANTON LABORATORIES, LLC-2067859

PATIENT
  Age: 50 Year
  Sex: Male
  Weight: 96 kg

DRUGS (11)
  1. IBUPROFEN. [Concomitant]
     Active Substance: IBUPROFEN
     Route: 048
     Dates: start: 20150112
  2. NEVIRAPINE. [Concomitant]
     Active Substance: NEVIRAPINE
     Route: 048
     Dates: start: 20020301
  3. PARACETAMOL [Concomitant]
     Active Substance: ACETAMINOPHEN
     Route: 048
     Dates: start: 20150112
  4. EZETIMIBE. [Suspect]
     Active Substance: EZETIMIBE
     Route: 048
     Dates: start: 20181115
  5. CETIRIZINE [Concomitant]
     Active Substance: CETIRIZINE HYDROCHLORIDE
     Route: 048
     Dates: start: 20180501
  6. HYALURONIC ACID [Concomitant]
     Active Substance: HYALURONIC ACID
     Route: 061
     Dates: start: 20180620
  7. PROPRANOLOL [Concomitant]
     Active Substance: PROPRANOLOL HYDROCHLORIDE
     Route: 048
     Dates: start: 20150112
  8. ZOPICLONE [Concomitant]
     Active Substance: ZOPICLONE
     Route: 048
  9. NAPROSYN [Suspect]
     Active Substance: NAPROXEN
     Indication: PRODUCT USED FOR UNKNOWN INDICATION
     Route: 048
     Dates: start: 20150112
  10. ACICLOVIR [Concomitant]
     Active Substance: ACYCLOVIR
     Route: 048
     Dates: start: 20010701
  11. KIVEXA [Suspect]
     Active Substance: ABACAVIR SULFATE\LAMIVUDINE
     Route: 048
     Dates: start: 20140911

REACTIONS (1)
  - Adenocarcinoma pancreas [Not Recovered/Not Resolved]

NARRATIVE: CASE EVENT DATE: 20190514
